FAERS Safety Report 20216317 (Version 1)
Quarter: 2021Q4

REPORT INFORMATION
  Report Type: Spontaneous
  Country: US (occurrence: None)
  Receive Date: 20211221
  Receipt Date: 20211221
  Transmission Date: 20220303
  Serious: No
  Sender: FDA-Public Use
  Company Number: None

PATIENT
  Age: 59 Year
  Sex: Female
  Weight: 106.8 kg

DRUGS (21)
  1. LETROZOLE [Suspect]
     Active Substance: LETROZOLE
     Indication: Breast cancer
     Dosage: FREQUENCY : DAILY;?
     Route: 048
     Dates: start: 20211124
  2. Acetaminophen Extra Strength Oral T [Concomitant]
  3. Advair Diskus Inhalation Aerosol Po [Concomitant]
  4. Atorvastatin Calcium Oral Tablet 20 [Concomitant]
  5. Calcium Carbonate-Vitamin D Oral Ta [Concomitant]
  6. Citalopram Hydrobromide Oral Tablet [Concomitant]
  7. Enoxaparin Sodium Subcutaneous Solu [Concomitant]
  8. Furosemide Oral Tablet 40 MG [Concomitant]
  9. HEPARIN [Concomitant]
     Active Substance: HEPARIN SODIUM
  10. IMODIUM [Concomitant]
     Active Substance: LOPERAMIDE HYDROCHLORIDE
  11. Lidocaine-Prilocaine External Cream [Concomitant]
  12. LOPERAMIDE [Concomitant]
     Active Substance: LOPERAMIDE
  13. Magnesium Oxide Oral Tablet 400 MG [Concomitant]
  14. OLANZapine Oral Tablet 2.5 MG [Concomitant]
  15. Pantoprazole Sodium Oral Tablet Del [Concomitant]
  16. Potassium Chloride Crys ER Oral Tab [Concomitant]
  17. Spiriva HandiHaler Inhalation Capsu [Concomitant]
  18. traMADol HCl Oral Tablet 50 MG [Concomitant]
  19. VERZENIO [Concomitant]
     Active Substance: ABEMACICLIB
  20. Vitamin D3 Oral Capsule 50 MCG (200 [Concomitant]
  21. XGEVA [Concomitant]
     Active Substance: DENOSUMAB

REACTIONS (1)
  - Dizziness [None]

NARRATIVE: CASE EVENT DATE: 20211221
